FAERS Safety Report 15836681 (Version 1)
Quarter: 2019Q1

REPORT INFORMATION
  Report Type: Spontaneous
  Country: DE (occurrence: DE)
  Receive Date: 20190117
  Receipt Date: 20190117
  Transmission Date: 20190417
  Serious: Yes (Congenital Anomaly, Other)
  Sender: FDA-Public Use
  Company Number: DE-TORRENT-00012955

PATIENT
  Age: 1 Day
  Sex: Male
  Weight: 1 kg

DRUGS (2)
  1. VENLAFAXINE [Suspect]
     Active Substance: VENLAFAXINE HYDROCHLORIDE
     Indication: ANXIETY DISORDER
     Dosage: 150 [MG/D ]
     Route: 064
     Dates: start: 20170911, end: 20180423
  2. KLACID [Concomitant]
     Active Substance: CLARITHROMYCIN
     Indication: UREAPLASMA INFECTION
     Route: 064

REACTIONS (2)
  - Tracheal stenosis [Unknown]
  - Foetal exposure during pregnancy [Unknown]

NARRATIVE: CASE EVENT DATE: 20180423
